FAERS Safety Report 4499177-1 (Version None)
Quarter: 2004Q4

REPORT INFORMATION
  Report Type: 
  Country: None (occurrence: None)
  Receive Date: 20041111
  Receipt Date: 20030102
  Transmission Date: 20050328
  Serious: Yes (Hospitalization, Other)
  Sender: FDA-Public Use
  Company Number: PHRM2003FR00440

PATIENT
  Age: 80 Year
  Sex: Female

DRUGS (6)
  1. LAMISIL [Suspect]
     Indication: FUNGAL SKIN INFECTION
     Dosage: 250 MG, QD
     Route: 048
     Dates: start: 20021101, end: 20021101
  2. SECTRAL [Concomitant]
     Route: 048
  3. RYTHMODAN [Concomitant]
     Route: 048
  4. DEROXAT [Suspect]
     Route: 048
  5. TROXERUTIN [Concomitant]
  6. OMEPRAZOLE [Suspect]

REACTIONS (26)
  - ANGIONEUROTIC OEDEMA [None]
  - APTYALISM [None]
  - DACRYOADENITIS ACQUIRED [None]
  - DRUG INTERACTION [None]
  - DRUG RASH WITH EOSINOPHILIA AND SYSTEMIC SYMPTOMS [None]
  - EOSINOPHILIA [None]
  - ERYTHEMA [None]
  - EYELID OEDEMA [None]
  - FACE OEDEMA [None]
  - GENITAL ERYTHEMA [None]
  - IMMUNE SYSTEM DISORDER [None]
  - KERATITIS [None]
  - KERATOCONJUNCTIVITIS SICCA [None]
  - LACRIMAL GLAND ENLARGEMENT [None]
  - LYMPHADENOPATHY [None]
  - LYMPHOCYTE MORPHOLOGY ABNORMAL [None]
  - PAROTITIS [None]
  - PERIANAL ERYTHEMA [None]
  - RASH GENERALISED [None]
  - RASH PAPULAR [None]
  - RASH PRURITIC [None]
  - RASH SCALY [None]
  - SIALOADENITIS [None]
  - SICCA SYNDROME [None]
  - SKIN OEDEMA [None]
  - SUBMAXILLARY GLAND ENLARGEMENT [None]
